FAERS Safety Report 23068338 (Version 1)
Quarter: 2023Q4

REPORT INFORMATION
  Report Type: Spontaneous
  Country: US (occurrence: US)
  Receive Date: 20231016
  Receipt Date: 20231016
  Transmission Date: 20240110
  Serious: No
  Sender: FDA-Public Use
  Company Number: US-TARO PHARMACEUTICALS USA INC.-2023TAR00337

PATIENT

DRUGS (1)
  1. AZELAIC ACID [Suspect]
     Active Substance: AZELAIC ACID
     Indication: Rosacea
     Dosage: UNK, BID
     Route: 061

REACTIONS (1)
  - Skin irritation [Unknown]
